FAERS Safety Report 6463597-6 (Version None)
Quarter: 2009Q4

REPORT INFORMATION
  Report Type: 
  Country: None (occurrence: None)
  Receive Date: 20091201
  Receipt Date: 20091124
  Transmission Date: 20100525
  Serious: Yes (Other)
  Sender: FDA-Public Use
  Company Number: IT-WYE-G04965609

PATIENT
  Sex: Male

DRUGS (2)
  1. EFFEXOR [Suspect]
     Indication: DEPRESSION
     Dosage: NOT REPORTED
     Dates: start: 20091101, end: 20091103
  2. ZOLOFT [Concomitant]
     Indication: DEPRESSION
     Dosage: NOT REPORTED
     Dates: start: 20091105, end: 20091110

REACTIONS (1)
  - HELLP SYNDROME [None]
